FAERS Safety Report 6520577-X (Version None)
Quarter: 2009Q4

REPORT INFORMATION
  Report Type: 
  Country: None (occurrence: None)
  Receive Date: 20091229
  Receipt Date: 20091224
  Transmission Date: 20100525
  Serious: Yes (Life-Threatening, Disabling)
  Sender: FDA-Public Use
  Company Number: JP-BAYER-200914554BYL

PATIENT
  Age: 81 Year
  Sex: Female
  Weight: 43 kg

DRUGS (16)
  1. NEXAVAR [Suspect]
     Indication: HEPATIC NEOPLASM MALIGNANT
     Dosage: TOTAL DAILY DOSE: 800 MG  UNIT DOSE: 200 MG
     Route: 048
     Dates: start: 20091117, end: 20091118
  2. PREDONINE [Suspect]
     Indication: DRUG USE FOR UNKNOWN INDICATION
     Route: 065
  3. CIPROXAN [Suspect]
     Indication: DRUG USE FOR UNKNOWN INDICATION
     Route: 065
  4. BEPRICOR [Concomitant]
     Indication: ATRIAL FIBRILLATION
     Dosage: UNIT DOSE: 50 MG
     Route: 048
     Dates: start: 20080412
  5. ARTIST [Concomitant]
     Indication: HYPERTENSION
     Dosage: UNIT DOSE: 10 MG
     Route: 048
     Dates: start: 20080414
  6. LASIX [Concomitant]
     Indication: HYPERTENSION
     Dosage: UNIT DOSE: 20 MG
     Route: 048
     Dates: start: 20080422
  7. ALDACTONE [Concomitant]
     Indication: HYPERTENSION
     Dosage: UNIT DOSE: 25 MG
     Route: 048
     Dates: start: 20080514
  8. MAGLAX [Concomitant]
     Indication: PROPHYLAXIS AGAINST GASTROINTESTINAL ULCER
     Dosage: UNIT DOSE: 500 MG
     Route: 048
     Dates: start: 20081204, end: 20091208
  9. OMEPRAL [Concomitant]
     Indication: PROPHYLAXIS AGAINST GASTROINTESTINAL ULCER
     Dosage: UNIT DOSE: 20 MG
     Route: 048
     Dates: start: 20090228, end: 20091208
  10. BONALON 35MG [Concomitant]
     Indication: BACK PAIN
     Dosage: UNIT DOSE: 35 MG
     Route: 048
     Dates: start: 20090820, end: 20091123
  11. KAYWAN [Concomitant]
     Dosage: UNIT DOSE: 20 MG
     Route: 048
     Dates: start: 20090905, end: 20091119
  12. ONEALFA [Concomitant]
     Indication: BACK PAIN
     Dosage: UNIT DOSE: 0.5 ?G
     Route: 048
     Dates: start: 20090905, end: 20091119
  13. OXINORM [Concomitant]
     Dosage: UNIT DOSE: 1 G
     Route: 048
     Dates: start: 20091020, end: 20091120
  14. OXYCONTIN [Concomitant]
     Dosage: UNIT DOSE: 5 MG
     Route: 048
     Dates: start: 20091022, end: 20091120
  15. LOXONIN [Concomitant]
     Dosage: UNIT DOSE: 60 MG
     Route: 048
     Dates: start: 20091024, end: 20091201
  16. NOVAMIN [Concomitant]
     Dosage: UNIT DOSE: 5 MG
     Route: 048
     Dates: start: 20091116, end: 20091119

REACTIONS (2)
  - DELIRIUM [None]
  - INTERSTITIAL LUNG DISEASE [None]
